FAERS Safety Report 17334239 (Version 1)
Quarter: 2020Q1

REPORT INFORMATION
  Report Type: Other
  Country: AT (occurrence: AT)
  Receive Date: 20200128
  Receipt Date: 20200128
  Transmission Date: 20200409
  Serious: Yes (Other)
  Sender: FDA-Public Use
  Company Number: AT-CELLTRION INC.-2020AT017891

PATIENT

DRUGS (7)
  1. RITUXIMAB (UNKNOWN) [Suspect]
     Active Substance: RITUXIMAB
     Indication: DIFFUSE LARGE B-CELL LYMPHOMA
     Dosage: 1 CYCLE R-COMP, 6 CYCLES R-COMP
     Route: 065
     Dates: start: 20171023, end: 20180306
  2. PREDNISOLONE. [Suspect]
     Active Substance: PREDNISOLONE
     Indication: DIFFUSE LARGE B-CELL LYMPHOMA
     Dosage: 1 CYCLE R-COMP, 6 CYCLES R2-COMP
     Route: 065
     Dates: start: 20171023, end: 20180306
  3. REVLIMID [Suspect]
     Active Substance: LENALIDOMIDE
     Indication: DIFFUSE LARGE B-CELL LYMPHOMA
     Dosage: 6 CYCLES R2-COMP
     Route: 065
     Dates: start: 20171114, end: 20180306
  4. VINCRISTINE [Suspect]
     Active Substance: VINCRISTINE
     Indication: DIFFUSE LARGE B-CELL LYMPHOMA
     Dosage: 1 CYCLE R-COMP, 6 CYCLES R2-COMP
     Route: 065
     Dates: start: 20171023, end: 20180306
  5. REVLIMID [Suspect]
     Active Substance: LENALIDOMIDE
     Dosage: REVLIMID MAINTENANCE
     Route: 065
     Dates: start: 20180518, end: 201807
  6. DOXORUBICIN [Suspect]
     Active Substance: DOXORUBICIN
     Indication: DIFFUSE LARGE B-CELL LYMPHOMA
     Dosage: 1 CYCLE R-COMP, 6 CYCLES R2-COMP
     Route: 065
     Dates: start: 20171023, end: 20180306
  7. CYCLOPHOSPHAMIDE. [Suspect]
     Active Substance: CYCLOPHOSPHAMIDE
     Indication: DIFFUSE LARGE B-CELL LYMPHOMA
     Dosage: 1 CYCLE R-COMP, 6 CYCLES R2-COMP
     Route: 065
     Dates: start: 20171023, end: 20180306

REACTIONS (1)
  - Coronary artery disease [Unknown]
